FAERS Safety Report 5258644-3 (Version None)
Quarter: 2007Q1

REPORT INFORMATION
  Report Type: 
  Country: None (occurrence: None)
  Receive Date: 20070308
  Receipt Date: 20070301
  Transmission Date: 20070707
  Serious: Yes (Hospitalization)
  Sender: FDA-Public Use
  Company Number: GB-ROCHE-486081

PATIENT
  Age: 72 Year
  Sex: Male
  Weight: 88.9 kg

DRUGS (1)
  1. XENICAL [Suspect]
     Indication: OBESITY
     Route: 048
     Dates: start: 20061018

REACTIONS (3)
  - CARDIAC DISORDER [None]
  - ILL-DEFINED DISORDER [None]
  - MALAISE [None]
